FAERS Safety Report 9474877 (Version 3)
Quarter: 2013Q3

REPORT INFORMATION
  Report Type: Spontaneous
  Country: JP (occurrence: JP)
  Receive Date: 20130823
  Receipt Date: 20130902
  Transmission Date: 20140515
  Serious: Yes (Death, Hospitalization, Other)
  Sender: FDA-Public Use
  Company Number: JP-ASTRAZENECA-2013SE14035

PATIENT
  Age: 70 Year
  Sex: Male

DRUGS (6)
  1. NEXIUM [Suspect]
     Indication: GASTRIC ULCER
     Route: 048
     Dates: start: 20130128, end: 20130219
  2. ACTOS [Concomitant]
     Dosage: DOSE UNKNOWN
     Route: 065
  3. METGLUCO [Concomitant]
     Dosage: DOSE UNKNOWN
     Route: 065
  4. MEVALOTIN [Concomitant]
     Dosage: DOSE UNKNOWN
     Route: 065
  5. OLMETEC [Concomitant]
     Dosage: DOSE UNKNOWN
     Route: 065
  6. AMLODIN [Concomitant]
     Dosage: DOSE UNKNOWN
     Route: 065

REACTIONS (6)
  - Shock haemorrhagic [Fatal]
  - Gastrointestinal haemorrhage [Fatal]
  - Hepatic function abnormal [Not Recovered/Not Resolved]
  - Yellow skin [Unknown]
  - Chromaturia [Unknown]
  - Drug dose omission [Unknown]
